FAERS Safety Report 7557275-X (Version None)
Quarter: 2011Q2

REPORT INFORMATION
  Report Type: 
  Country: None (occurrence: None)
  Receive Date: 20110620
  Receipt Date: 20080325
  Transmission Date: 20111010
  Serious: Yes (Death)
  Sender: FDA-Public Use
  Company Number: PHHY2008DE37516

PATIENT
  Sex: Male
  Weight: 94 kg

DRUGS (14)
  1. METAMIZOLE SODIUM [Concomitant]
  2. GRANISETRON [Concomitant]
     Dosage: 2.0 MG, UNK
  3. SANDOSTATIN LAR [Suspect]
     Dosage: 40 MG, UNK
     Route: 030
  4. SANDOSTATIN LAR [Suspect]
     Dosage: 60 MG, UNK
     Route: 030
  5. LOPEDIUM [Concomitant]
  6. SANDOSTATIN LAR [Suspect]
     Indication: NEUROENDOCRINE TUMOUR
     Dosage: 30 MG, UNK
     Route: 030
     Dates: start: 20070501
  7. SANDOSTATIN [Suspect]
     Indication: NEUROENDOCRINE TUMOUR
     Dosage: 100 UG, TID
     Route: 058
     Dates: start: 20080619, end: 20080622
  8. MESALAMINE [Concomitant]
  9. FURORESE [Concomitant]
     Dosage: 40 MG, UNK
  10. METOPROLOL TARTRATE [Concomitant]
     Dosage: 200 MG, UNK
  11. EMEND [Concomitant]
  12. HYCAMTIN [Concomitant]
  13. OPIUM [Concomitant]
     Dosage: 2-3X DAILY PER  5GTT-1000ML  GLUCOSE  5%
  14. SANDOSTATIN LAR [Suspect]
     Dosage: 20 MG, UNK
     Route: 030

REACTIONS (4)
  - FLUID RETENTION [None]
  - DIARRHOEA [None]
  - BRONCHIAL CARCINOMA [None]
  - ABDOMINAL PAIN [None]
